FAERS Safety Report 12929830 (Version 2)
Quarter: 2017Q2

REPORT INFORMATION
  Report Type: Report from Study
  Country: CZ (occurrence: CZ)
  Receive Date: 20161110
  Receipt Date: 20170406
  Transmission Date: 20170830
  Serious: Yes (Hospitalization, Other)
  Sender: FDA-Public Use
  Company Number: CZ-HIKMA PHARMACEUTICALS CO. LTD-2016CZ011523

PATIENT

DRUGS (12)
  1. REMSIMA [Suspect]
     Active Substance: INFLIXIMAB
     Dosage: 450 MG, UNK
     Route: 065
     Dates: start: 20151208, end: 20151208
  2. REMSIMA [Suspect]
     Active Substance: INFLIXIMAB
     Dosage: 450 MG, UNK
     Route: 065
     Dates: start: 20160105, end: 20160105
  3. REMSIMA [Suspect]
     Active Substance: INFLIXIMAB
     Dosage: 450 MG, UNK
     Route: 065
     Dates: start: 20160216, end: 20160216
  4. CEFUROXIM                          /00454602/ [Concomitant]
     Active Substance: CEFUROXIME
     Indication: PYELONEPHRITIS ACUTE
     Dosage: 500 MG, EVERY 12 HOURS
     Route: 048
     Dates: start: 20161001, end: 20161006
  5. REMSIMA [Suspect]
     Active Substance: INFLIXIMAB
     Dosage: 450 MG, UNK
     Route: 065
     Dates: start: 20160322, end: 20160322
  6. REMSIMA [Suspect]
     Active Substance: INFLIXIMAB
     Dosage: 450 MG, UNK
     Route: 065
     Dates: start: 20160614, end: 20160614
  7. UNASYN [Concomitant]
     Active Substance: AMPICILLIN SODIUM\SULBACTAM SODIUM
     Indication: PYELONEPHRITIS ACUTE
     Dosage: 1 G, EVERY 12 HOURS
     Route: 048
     Dates: start: 20161102, end: 20161112
  8. METAMIZOL                          /06276702/ [Concomitant]
     Active Substance: METAMIZOLE
     Indication: URETEROLITHIASIS
     Dosage: 40 DROP, DAILY
     Route: 048
     Dates: start: 20161024
  9. REMSIMA [Suspect]
     Active Substance: INFLIXIMAB
     Indication: ANKYLOSING SPONDYLITIS
     Dosage: 460 MG, UNK
     Route: 065
     Dates: start: 20151125, end: 20151125
  10. REMSIMA [Suspect]
     Active Substance: INFLIXIMAB
     Dosage: 450 MG, UNK
     Route: 065
     Dates: start: 20160503, end: 20160503
  11. TROSPI [Concomitant]
     Active Substance: TROSPIUM CHLORIDE
     Indication: URETEROLITHIASIS
     Dosage: 15 MG, ONCE A DAY
     Route: 048
     Dates: start: 20161024
  12. REMSIMA [Suspect]
     Active Substance: INFLIXIMAB
     Dosage: 450 MG, UNK
     Route: 065
     Dates: start: 20161129, end: 20161129

REACTIONS (1)
  - Ureterolithiasis [Recovered/Resolved]

NARRATIVE: CASE EVENT DATE: 20161024
